FAERS Safety Report 14778709 (Version 3)
Quarter: 2018Q2

REPORT INFORMATION
  Report Type: Report from Study
  Country: US (occurrence: US)
  Receive Date: 20180419
  Receipt Date: 20180518
  Transmission Date: 20180711
  Serious: Yes (Hospitalization)
  Sender: FDA-Public Use
  Company Number: US-JNJFOC-20180117748

PATIENT
  Age: 59 Year
  Sex: Female

DRUGS (19)
  1. COLCHICINE. [Concomitant]
     Active Substance: COLCHICINE
  2. CYCLOBENZAPRINE. [Concomitant]
     Active Substance: CYCLOBENZAPRINE
  3. OXYCODONE [Concomitant]
     Active Substance: OXYCODONE
  4. BACTRIM DS [Concomitant]
     Active Substance: SULFAMETHOXAZOLE\TRIMETHOPRIM
  5. IMBRUVICA [Suspect]
     Active Substance: IBRUTINIB
     Indication: CHRONIC LYMPHOCYTIC LEUKAEMIA
     Route: 048
     Dates: start: 20171206, end: 20180406
  6. IMBRUVICA [Suspect]
     Active Substance: IBRUTINIB
     Indication: CHRONIC LYMPHOCYTIC LEUKAEMIA
     Route: 048
     Dates: start: 20171207
  7. ZOLOFT [Concomitant]
     Active Substance: SERTRALINE HYDROCHLORIDE
  8. ZOLPIDEM [Concomitant]
     Active Substance: ZOLPIDEM\ZOLPIDEM TARTRATE
  9. HCTZ [Concomitant]
     Active Substance: HYDROCHLOROTHIAZIDE
  10. HUMULIN NOS [Concomitant]
     Active Substance: INSULIN HUMAN
  11. LEVEMIR [Concomitant]
     Active Substance: INSULIN DETEMIR
  12. LISINOPRIL AND HYDROCHLOROTHIAZIDE [Concomitant]
     Active Substance: HYDROCHLOROTHIAZIDE\LISINOPRIL
  13. BISAC EVAC [Concomitant]
  14. PRILOSEC [Concomitant]
     Active Substance: OMEPRAZOLE MAGNESIUM
  15. MIRALAX [Concomitant]
     Active Substance: POLYETHYLENE GLYCOL 3350
  16. LISINOPRIL. [Concomitant]
     Active Substance: LISINOPRIL
  17. IBRUTINIB [Suspect]
     Active Substance: IBRUTINIB
     Indication: CHRONIC LYMPHOCYTIC LEUKAEMIA
     Route: 048
     Dates: start: 20180407
  18. XANAX [Concomitant]
     Active Substance: ALPRAZOLAM
  19. LACTOBACILLUS [Concomitant]
     Active Substance: LACTOBACILLUS ACIDOPHILUS

REACTIONS (13)
  - Gastric infection [Recovered/Resolved]
  - Joint swelling [Unknown]
  - Incorrect dose administered [Unknown]
  - Fluid retention [Recovered/Resolved]
  - Peripheral swelling [Unknown]
  - Nausea [Unknown]
  - Musculoskeletal stiffness [Unknown]
  - White blood cell count decreased [Unknown]
  - Somnolence [Not Recovered/Not Resolved]
  - Myalgia [Unknown]
  - Dizziness [Unknown]
  - Diarrhoea [Not Recovered/Not Resolved]
  - Off label use [Unknown]

NARRATIVE: CASE EVENT DATE: 201712
